FAERS Safety Report 22259356 (Version 1)
Quarter: 2023Q2

REPORT INFORMATION
  Report Type: Spontaneous
  Country: US (occurrence: None)
  Receive Date: 20230426
  Receipt Date: 20230426
  Transmission Date: 20230722
  Serious: Yes (Other)
  Sender: FDA-Public Use
  Company Number: None

PATIENT
  Age: 66 Year
  Sex: Male
  Weight: 81 kg

DRUGS (1)
  1. ESOMEPRAZOLE [Suspect]
     Active Substance: ESOMEPRAZOLE
     Indication: Barrett^s oesophagus
     Dosage: FREQUENCY : TWICE A DAY;?
     Route: 048
     Dates: start: 20230418, end: 20230425

REACTIONS (4)
  - Treatment failure [None]
  - Product substitution issue [None]
  - Barrett^s oesophagus [None]
  - Condition aggravated [None]

NARRATIVE: CASE EVENT DATE: 20230426
